FAERS Safety Report 4723210-2 (Version None)
Quarter: 2005Q3

REPORT INFORMATION
  Report Type: 
  Country: None (occurrence: None)
  Receive Date: 20050720
  Receipt Date: 20050707
  Transmission Date: 20060218
  Serious: No
  Sender: FDA-Public Use
  Company Number: 215205

PATIENT
  Age: 10 Year
  Sex: Male
  Weight: 23.9 kg

DRUGS (3)
  1. NUTROPIN AQ [Suspect]
     Indication: BODY HEIGHT BELOW NORMAL
     Dosage: 0.6 MG, BID, SUBCUTANEOUS
     Route: 058
     Dates: start: 20050412, end: 20050603
  2. FOSAMAX [Concomitant]
  3. STEROIDS                        (STEROIDS NOS) [Concomitant]

REACTIONS (7)
  - BLOOD ALKALINE PHOSPHATASE INCREASED [None]
  - BLOOD IMMUNOGLOBULIN G DECREASED [None]
  - LYMPHANGIECTASIA [None]
  - LYMPHOPENIA [None]
  - PROTEIN-LOSING GASTROENTEROPATHY [None]
  - THYROXINE DECREASED [None]
  - TRI-IODOTHYRONINE INCREASED [None]
